FAERS Safety Report 13490736 (Version 1)
Quarter: 2017Q2

REPORT INFORMATION
  Report Type: Spontaneous
  Country: US (occurrence: US)
  Receive Date: 20170426
  Receipt Date: 20170426
  Transmission Date: 20170830
  Serious: Yes (Other)
  Sender: FDA-Public Use
  Company Number: None

PATIENT
  Age: 59 Year
  Sex: Male
  Weight: 102 kg

DRUGS (10)
  1. OMEPRAZOLE. [Concomitant]
     Active Substance: OMEPRAZOLE
  2. NITROGLYCERIN. [Concomitant]
     Active Substance: NITROGLYCERIN
  3. CLOPIDOGREL [Concomitant]
     Active Substance: CLOPIDOGREL BISULFATE
  4. CARVEDILOL. [Concomitant]
     Active Substance: CARVEDILOL
  5. LISDEXAMFETAMINE [Concomitant]
     Active Substance: LISDEXAMFETAMINE
  6. DOLUTEGRAVIR 50 MG [Suspect]
     Active Substance: DOLUTEGRAVIR
  7. EMTRICITABINE/TENOFOVIR [Concomitant]
     Active Substance: EMTRICITABINE\TENOFOVIR
  8. CLINDAMYCIN 300MG [Suspect]
     Active Substance: CLINDAMYCIN PHOSPHATE
  9. ATORVASTATIN [Concomitant]
     Active Substance: ATORVASTATIN
  10. ASPIRIN. [Concomitant]
     Active Substance: ASPIRIN

REACTIONS (5)
  - Intentional self-injury [None]
  - Fatigue [None]
  - Irritability [None]
  - Depression [None]
  - Headache [None]
